FAERS Safety Report 11785268 (Version 1)
Quarter: 2015Q4

REPORT INFORMATION
  Report Type: Spontaneous
  Country: US (occurrence: US)
  Receive Date: 20151130
  Receipt Date: 20151130
  Transmission Date: 20160305
  Serious: No
  Sender: FDA-Public Use
  Company Number: US-PFIZER INC-2015406935

PATIENT
  Age: 54 Year
  Sex: Female
  Weight: 72.57 kg

DRUGS (1)
  1. CHANTIX [Suspect]
     Active Substance: VARENICLINE TARTRATE
     Dosage: 2X/DAY, ONE IN THE MORNING, ONE IN THE EVENING
     Dates: start: 2015, end: 201511

REACTIONS (4)
  - Pruritus [Recovering/Resolving]
  - Scratch [Recovering/Resolving]
  - Erythema [Recovering/Resolving]
  - Rash [Recovering/Resolving]

NARRATIVE: CASE EVENT DATE: 201511
